FAERS Safety Report 9355945 (Version 1)
Quarter: 2013Q2

REPORT INFORMATION
  Report Type: Report from Study
  Country: MX (occurrence: MX)
  Receive Date: 20130619
  Receipt Date: 20130619
  Transmission Date: 20140414
  Serious: Yes (Death, Hospitalization)
  Sender: FDA-Public Use
  Company Number: MX-ROCHE-1224526

PATIENT
  Age: 35 Year
  Sex: Female

DRUGS (2)
  1. XELODA [Suspect]
     Indication: BREAST CANCER
     Route: 065
  2. HERCEPTIN [Suspect]
     Indication: BREAST CANCER
     Route: 065
     Dates: start: 20130426

REACTIONS (10)
  - Dyspnoea [Unknown]
  - Tachycardia [Unknown]
  - Agitation [Unknown]
  - Haemorrhage [Unknown]
  - Abdominal pain [Unknown]
  - Constipation [Unknown]
  - Breast inflammation [Unknown]
  - Disease progression [Fatal]
  - Drug ineffective [Fatal]
  - Pleural effusion [Not Recovered/Not Resolved]
